FAERS Safety Report 5878117-4 (Version None)
Quarter: 2008Q3

REPORT INFORMATION
  Report Type: 
  Country: None (occurrence: None)
  Receive Date: 20080911
  Receipt Date: 20080910
  Transmission Date: 20090109
  Serious: Yes (Other)
  Sender: FDA-Public Use
  Company Number: A0707030A

PATIENT
  Age: 44 Year
  Sex: Female
  Weight: 121.4 kg

DRUGS (5)
  1. ALLI [Suspect]
     Route: 048
     Dates: start: 20080108, end: 20080501
  2. PAIN MEDICATION [Suspect]
  3. ALLI [Suspect]
     Indication: WEIGHT LOSS DIET
     Route: 048
  4. SLEEPING PILLS [Concomitant]
  5. WELLBUTRIN [Concomitant]

REACTIONS (40)
  - ABDOMINAL DISTENSION [None]
  - ANOREXIA [None]
  - ASTHMA [None]
  - BACK DISORDER [None]
  - BACK PAIN [None]
  - BLOOD PRESSURE INCREASED [None]
  - COUGH [None]
  - DEPRESSED MOOD [None]
  - DEPRESSION [None]
  - DIARRHOEA [None]
  - DISCOMFORT [None]
  - DRUG INEFFECTIVE [None]
  - DYSPEPSIA [None]
  - FATIGUE [None]
  - FIBROMYALGIA [None]
  - FOOD CRAVING [None]
  - GAIT DISTURBANCE [None]
  - GASTRIC DISORDER [None]
  - HUNGER [None]
  - HYPERPHAGIA [None]
  - ILL-DEFINED DISORDER [None]
  - INFLUENZA [None]
  - JOINT SWELLING [None]
  - MALAISE [None]
  - MENSTRUATION DELAYED [None]
  - MIGRAINE [None]
  - MOBILITY DECREASED [None]
  - NAUSEA [None]
  - NERVE BLOCK [None]
  - OEDEMA PERIPHERAL [None]
  - PAIN [None]
  - PAIN IN EXTREMITY [None]
  - PHARYNGITIS STREPTOCOCCAL [None]
  - POLYDIPSIA [None]
  - POOR QUALITY SLEEP [None]
  - SINUSITIS [None]
  - STRESS [None]
  - TENDERNESS [None]
  - WEIGHT FLUCTUATION [None]
  - WEIGHT INCREASED [None]
